FAERS Safety Report 4658845-9 (Version None)
Quarter: 2005Q2

REPORT INFORMATION
  Report Type: 
  Country: None (occurrence: None)
  Receive Date: 20050509
  Receipt Date: 20050425
  Transmission Date: 20051028
  Serious: Yes (Death, Other)
  Sender: FDA-Public Use
  Company Number: 2005063997

PATIENT
  Age: 71 Year
  Sex: Male

DRUGS (8)
  1. IRINOTECAN [Suspect]
     Indication: SMALL CELL LUNG CANCER STAGE UNSPECIFIED
     Dosage: INTRAVENOUS
     Route: 042
  2. DICLOFENAC SODUM           (DICLOFENAC SODIUM) [Suspect]
     Indication: ILL-DEFINED DISORDER
     Dosage: 75 MG (DAILY), ORAL
     Route: 048
  3. MORPHINE [Suspect]
     Indication: ILL-DEFINED DISORDER
     Dosage: SEE IMAGE
     Route: 048
  4. BETAMETHASONE [Suspect]
     Indication: NAUSEA
     Dosage: SEE IMAGE
     Route: 048
  5. LOPERAMIDE [Suspect]
     Indication: ABDOMINAL PAIN
     Dosage: 2 MG (DAILY), ORAL
     Route: 048
  6. LOPERAMIDE [Suspect]
     Indication: DIARRHOEA
     Dosage: 2 MG (DAILY), ORAL
     Route: 048
  7. CISPLATIN [Concomitant]
  8. PREPARATION (HERBAL PREPARATION) [Concomitant]

REACTIONS (8)
  - ABDOMINAL PAIN [None]
  - CONSTIPATION [None]
  - DIARRHOEA [None]
  - DUODENAL PERFORATION [None]
  - LEUKOPENIA [None]
  - MALAISE [None]
  - PERITONITIS [None]
  - STRESS [None]
